FAERS Safety Report 6108233-3 (Version None)
Quarter: 2009Q1

REPORT INFORMATION
  Report Type: 
  Country: None (occurrence: None)
  Receive Date: 20090303
  Receipt Date: 20090219
  Transmission Date: 20090719
  Serious: Yes (Other)
  Sender: FDA-Public Use
  Company Number: CIP08002834

PATIENT
  Age: 73 Year
  Sex: Male

DRUGS (6)
  1. RISEDRONATE SODIUM [Suspect]
     Indication: OSTEOPOROSIS
     Dosage: 17.5 MG ONCE WEEKLY, ORAL
     Route: 048
     Dates: start: 20081218, end: 20081225
  2. ZYRTEC [Concomitant]
  3. NIPOLAZIN (MEQUITAZINE) [Concomitant]
  4. ALLEGRA /01314201/ (FEXOFENADINE) [Concomitant]
  5. GASTER /00706001/ (FAMOTIDINE) [Concomitant]
  6. RINDERON /00008501/ (BETAMETHASONE) [Concomitant]

REACTIONS (4)
  - ANOREXIA [None]
  - DECREASED APPETITE [None]
  - GAIT DISTURBANCE [None]
  - PAIN IN EXTREMITY [None]
